FAERS Safety Report 8490018-4 (Version None)
Quarter: 2012Q3

REPORT INFORMATION
  Report Type: 
  Country: None (occurrence: None)
  Receive Date: 20120705
  Receipt Date: 20120629
  Transmission Date: 20120928
  Serious: Yes (Other)
  Sender: FDA-Public Use
  Company Number: JP-JNJFOC-20120604600

PATIENT
  Age: 93 Year
  Sex: Female

DRUGS (10)
  1. LIPITOR [Suspect]
     Indication: PRODUCT USED FOR UNKNOWN INDICATION
     Route: 048
     Dates: end: 20120606
  2. VESICARE [Suspect]
     Indication: PRODUCT USED FOR UNKNOWN INDICATION
     Route: 048
     Dates: end: 20120601
  3. ASPIRIN [Suspect]
     Indication: PRODUCT USED FOR UNKNOWN INDICATION
     Route: 048
     Dates: end: 20120601
  4. MEMANTINE HYDROCHLORIDE [Concomitant]
     Route: 048
  5. MONTELUKAST SODIUM [Concomitant]
     Route: 048
  6. CADUET [Concomitant]
     Route: 048
  7. FAMOTIDINE [Suspect]
     Indication: PRODUCT USED FOR UNKNOWN INDICATION
     Route: 065
     Dates: end: 20120606
  8. UNKNOWN MEDICATION [Concomitant]
     Route: 065
  9. CEFAZOLIN SODIUM [Concomitant]
     Route: 048
  10. GALANTAMINE HYDROBROMIDE [Suspect]
     Indication: DEMENTIA ALZHEIMER'S TYPE
     Route: 048
     Dates: start: 20110501

REACTIONS (1)
  - PANCYTOPENIA [None]
